FAERS Safety Report 6714254-X (Version None)
Quarter: 2010Q2

REPORT INFORMATION
  Report Type: 
  Country: None (occurrence: None)
  Receive Date: 20100506
  Receipt Date: 20090526
  Transmission Date: 20101027
  Serious: No
  Sender: FDA-Public Use
  Company Number: US-BAUSCH-2009BL002555

PATIENT
  Age: 72 Year
  Sex: Female

DRUGS (8)
  1. LOTEMAX [Suspect]
     Indication: DRY EYE
     Route: 047
     Dates: start: 20080909, end: 20080909
  2. LOTEMAX [Suspect]
     Indication: OFF LABEL USE
     Route: 047
     Dates: start: 20080909, end: 20080909
  3. REFRESH [Concomitant]
  4. LISINOPRIL [Concomitant]
  5. DARVON [Concomitant]
  6. SIMVASTATIN [Concomitant]
  7. SYNTHROID [Concomitant]
  8. ACIPHEX [Concomitant]

REACTIONS (2)
  - EYE IRRITATION [None]
  - VITREOUS FLOATERS [None]
